FAERS Safety Report 4415771-8 (Version None)
Quarter: 2004Q2

REPORT INFORMATION
  Report Type: 
  Country: None (occurrence: None)
  Receive Date: 20040628
  Receipt Date: 20030722
  Transmission Date: 20050107
  Serious: No
  Sender: FDA-Public Use
  Company Number: 328988

PATIENT
  Age: 59 Year
  Sex: Male
  Weight: 148.8 kg

DRUGS (1)
  1. CELLCEPT [Suspect]
     Indication: OCULAR MYASTHENIA
     Dosage: 500 MG   2 PER DAY    ORAL
     Route: 048
     Dates: start: 20021114, end: 20030211

REACTIONS (4)
  - ALANINE AMINOTRANSFERASE INCREASED [None]
  - ASPARTATE AMINOTRANSFERASE INCREASED [None]
  - BLOOD ALKALINE PHOSPHATASE INCREASED [None]
  - FATIGUE [None]
